FAERS Safety Report 14449237 (Version 1)
Quarter: 2018Q1

REPORT INFORMATION
  Report Type: Spontaneous
  Country: CZ (occurrence: CZ)
  Receive Date: 20180127
  Receipt Date: 20180127
  Transmission Date: 20180509
  Serious: Yes (Hospitalization, Disabling)
  Sender: FDA-Public Use
  Company Number: CZ-UCBSA-2018001972

PATIENT
  Age: 55 Year
  Sex: Male

DRUGS (1)
  1. CERTOLIZUMAB PEGOL [Suspect]
     Active Substance: CERTOLIZUMAB PEGOL
     Indication: PSORIASIS
     Dosage: 1 DF, EV 2 WEEKS(QOW)

REACTIONS (2)
  - Bone abscess [Unknown]
  - Muscle abscess [Unknown]

NARRATIVE: CASE EVENT DATE: 20171211
